FAERS Safety Report 16956585 (Version 2)
Quarter: 2020Q4

REPORT INFORMATION
  Report Type: Report from Study
  Country: GB (occurrence: GB)
  Receive Date: 20191024
  Receipt Date: 20201211
  Transmission Date: 20210113
  Serious: Yes (Other)
  Sender: FDA-Public Use
  Company Number: NVSC2019GB009376

PATIENT
  Age: 6 Year
  Sex: Female
  Weight: 16.6 kg

DRUGS (5)
  1. TRAMETINIB [Suspect]
     Active Substance: TRAMETINIB
     Indication: NEUROFIBROMA
     Dosage: 10 ML (0.5 MG) SUSPENSION
     Route: 048
     Dates: start: 20181002
  2. TRAMETINIB [Suspect]
     Active Substance: TRAMETINIB
     Dosage: 4 ML, QD SUSPENSION (1 ML (0.05 MG) PLUS INCREASING SLOWLY)
     Route: 048
     Dates: end: 20181231
  3. TRAMETINIB [Suspect]
     Active Substance: TRAMETINIB
     Dosage: 0.5 ML (0.25 MG)
     Route: 065
     Dates: start: 20181218, end: 20181231
  4. TRAMETINIB [Suspect]
     Active Substance: TRAMETINIB
     Dosage: 7.5 ML (0.375 MG)
     Route: 048
     Dates: start: 20181106
  5. GABAPENTIN. [Concomitant]
     Active Substance: GABAPENTIN
     Indication: PAIN
     Dosage: (100 MG AM 200 MG PM)
     Route: 065

REACTIONS (5)
  - Blister [Recovered/Resolved]
  - Gastrooesophageal reflux disease [Recovered/Resolved]
  - Paronychia [Recovered/Resolved]
  - Rash macular [Recovered/Resolved]
  - Lower respiratory tract infection [Unknown]

NARRATIVE: CASE EVENT DATE: 20181106
